FAERS Safety Report 6309931-9 (Version None)
Quarter: 2009Q3

REPORT INFORMATION
  Report Type: 
  Country: None (occurrence: None)
  Receive Date: 20090814
  Receipt Date: 20090807
  Transmission Date: 20100115
  Serious: Yes (Other)
  Sender: FDA-Public Use
  Company Number: B0578192A

PATIENT
  Age: 60 Year
  Sex: Male

DRUGS (4)
  1. VALTREX [Suspect]
     Dosage: 1000MG THREE TIMES PER DAY
     Route: 048
     Dates: start: 20090501, end: 20090522
  2. WARFARIN SODIUM [Concomitant]
     Indication: UVEITIS
     Route: 048
  3. ASPIRIN [Concomitant]
     Route: 048
  4. PREDONINE [Concomitant]
     Indication: UVEITIS
     Route: 048

REACTIONS (1)
  - RETINAL HAEMORRHAGE [None]
